FAERS Safety Report 4804025-3 (Version None)
Quarter: 2005Q4

REPORT INFORMATION
  Report Type: 
  Country: None (occurrence: None)
  Receive Date: 20051018
  Receipt Date: 20051018
  Transmission Date: 20060501
  Serious: Yes (Other)
  Sender: FDA-Public Use
  Company Number: None

PATIENT
  Age: 63 Year
  Sex: Female
  Weight: 74.8435 kg

DRUGS (5)
  1. CELEBREX [Suspect]
     Indication: ARTHRALGIA
     Dosage: 200 MG ONCE /DAY
     Dates: start: 20050912, end: 20050913
  2. LEVOXYL [Concomitant]
  3. BIOIDENTICAL TESTOSTERONE [Concomitant]
  4. PROGESTERONE CREAMS [Concomitant]
  5. ESTRADIOL [Concomitant]

REACTIONS (4)
  - ANXIETY [None]
  - BLOOD PRESSURE INCREASED [None]
  - MALAISE [None]
  - PALPITATIONS [None]
